FAERS Safety Report 5891759-5 (Version None)
Quarter: 2008Q3

REPORT INFORMATION
  Report Type: 
  Country: None (occurrence: None)
  Receive Date: 20080922
  Receipt Date: 20080910
  Transmission Date: 20090109
  Serious: Yes (Death, Life-Threatening, Other)
  Sender: FDA-Public Use
  Company Number: JP-PFIZER INC-2008069639

PATIENT
  Sex: Male
  Weight: 66 kg

DRUGS (7)
  1. SU-011,248 [Suspect]
     Indication: RENAL CELL CARCINOMA
     Route: 048
     Dates: start: 20080725, end: 20080815
  2. MOBIC [Concomitant]
     Route: 048
     Dates: end: 20080815
  3. ALOSITOL [Concomitant]
     Route: 048
     Dates: start: 20080731, end: 20080815
  4. GASLON [Concomitant]
     Route: 048
     Dates: start: 20080725, end: 20080804
  5. SELBEX [Concomitant]
     Route: 048
     Dates: start: 20080730, end: 20080815
  6. MICARDIS [Concomitant]
     Route: 048
     Dates: start: 20080726, end: 20080815
  7. MAGNESIUM OXIDE [Concomitant]
     Route: 048
     Dates: start: 20080726

REACTIONS (4)
  - DISSEMINATED INTRAVASCULAR COAGULATION [None]
  - INTESTINAL PERFORATION [None]
  - PERITONITIS [None]
  - PLATELET COUNT DECREASED [None]
